FAERS Safety Report 17636370 (Version 1)
Quarter: 2020Q2

REPORT INFORMATION
  Report Type: Spontaneous
  Country: US (occurrence: US)
  Receive Date: 20200403
  Receipt Date: 20200403
  Transmission Date: 20200713
  Serious: Yes (Life-Threatening, Hospitalization, Disabling)
  Sender: FDA-Public Use
  Company Number: None

PATIENT
  Age: 53 Year
  Sex: Female
  Weight: 83.25 kg

DRUGS (21)
  1. AMITIZA [Concomitant]
     Active Substance: LUBIPROSTONE
  2. BENZONATATE. [Concomitant]
     Active Substance: BENZONATATE
  3. HYDROXYCHLOROQUINE [Concomitant]
     Active Substance: HYDROXYCHLOROQUINE
  4. LEVOTHYROXINE. [Concomitant]
     Active Substance: LEVOTHYROXINE
  5. SYMBICORT [Concomitant]
     Active Substance: BUDESONIDE\FORMOTEROL FUMARATE DIHYDRATE
  6. MULTI VITAMIN [Concomitant]
     Active Substance: VITAMINS
  7. MAGNESIUM [Concomitant]
     Active Substance: MAGNESIUM
  8. LINES [Concomitant]
  9. MIRALAX [Suspect]
     Active Substance: POLYETHYLENE GLYCOL 3350
     Indication: CONSTIPATION
  10. LEXAPRO [Suspect]
     Active Substance: ESCITALOPRAM OXALATE
  11. ROSUVASTATIN. [Concomitant]
     Active Substance: ROSUVASTATIN
  12. FLEXERIL [Concomitant]
     Active Substance: CYCLOBENZAPRINE HYDROCHLORIDE
  13. DOXEPIN [Concomitant]
     Active Substance: DOXEPIN
  14. GUAIFENESIN. [Concomitant]
     Active Substance: GUAIFENESIN
  15. ZINC. [Concomitant]
     Active Substance: ZINC
  16. VITAMIN B COMPLEX [Concomitant]
     Active Substance: CYANOCOBALAMIN\DEXPANTHENOL\NIACINAMIDE\PYRIDOXINE HYDROCHLORIDE\RIBOFLAVIN 5^-PHOSPHATE SODIUM\THIAMINE HYDROCHLORIDE\VITAMIN B COMPLEX
  17. PROAIR HFA [Concomitant]
     Active Substance: ALBUTEROL SULFATE
  18. SOMA [Concomitant]
     Active Substance: CARISOPRODOL
  19. METHYLPHENIDATE. [Concomitant]
     Active Substance: METHYLPHENIDATE
  20. SERTRALINE [Concomitant]
     Active Substance: SERTRALINE HYDROCHLORIDE
  21. CALCIUM CITRATE [Concomitant]
     Active Substance: CALCIUM CITRATE

REACTIONS (14)
  - Anxiety [None]
  - Restlessness [None]
  - Blood pressure fluctuation [None]
  - Memory impairment [None]
  - Loss of personal independence in daily activities [None]
  - Visual impairment [None]
  - Pain [None]
  - Withdrawal syndrome [None]
  - Chest pain [None]
  - Hypertension [None]
  - Cold sweat [None]
  - Crystal urine present [None]
  - Hyperhidrosis [None]
  - Increased tendency to bruise [None]
